FAERS Safety Report 8455282-6 (Version None)
Quarter: 2012Q2

REPORT INFORMATION
  Report Type: 
  Country: None (occurrence: None)
  Receive Date: 20120621
  Receipt Date: 20120612
  Transmission Date: 20120825
  Serious: Yes (Other)
  Sender: FDA-Public Use
  Company Number: GR-PFIZER INC-2012143351

PATIENT
  Age: 19 Year
  Sex: Female

DRUGS (2)
  1. CISPLATIN [Suspect]
     Indication: METASTATIC RENAL CELL CARCINOMA
     Dosage: 100 MG/M2, EVERY 3 WEEKS
  2. SUNITINIB MALATE [Suspect]
     Indication: METASTATIC RENAL CELL CARCINOMA
     Dosage: 50 MG, DAILY, 4 WEEKS ON AND 2 WEEKS OFF

REACTIONS (2)
  - SOFT TISSUE NECROSIS [None]
  - GINGIVAL BLEEDING [None]
